FAERS Safety Report 18046503 (Version 4)
Quarter: 2020Q3

REPORT INFORMATION
  Report Type: Spontaneous
  Country: US (occurrence: US)
  Receive Date: 20200720
  Receipt Date: 20200923
  Transmission Date: 20201103
  Serious: Yes (Other)
  Sender: FDA-Public Use
  Company Number: US-PFIZER INC-2020275207

PATIENT
  Age: 12 Year
  Sex: Female
  Weight: 61 kg

DRUGS (3)
  1. SERTRALINE HCL [Suspect]
     Active Substance: SERTRALINE HYDROCHLORIDE
     Dosage: 3 ML
     Route: 048
     Dates: start: 20200131, end: 20200715
  2. SERTRALINE HCL [Suspect]
     Active Substance: SERTRALINE HYDROCHLORIDE
     Dosage: 2 ML
     Route: 048
  3. SERTRALINE HCL [Suspect]
     Active Substance: SERTRALINE HYDROCHLORIDE
     Indication: DEPRESSION
     Dosage: 1 ML
     Route: 048

REACTIONS (8)
  - Sleep terror [Unknown]
  - Intentional self-injury [Unknown]
  - Hallucinations, mixed [Recovered/Resolved]
  - Suicide attempt [Unknown]
  - Suicidal ideation [Not Recovered/Not Resolved]
  - Impulsive behaviour [Not Recovered/Not Resolved]
  - Insomnia [Not Recovered/Not Resolved]
  - Suicidal behaviour [Unknown]

NARRATIVE: CASE EVENT DATE: 20200214
